FAERS Safety Report 25633087 (Version 1)
Quarter: 2025Q3

REPORT INFORMATION
  Report Type: Spontaneous
  Country: US (occurrence: US)
  Receive Date: 20250801
  Receipt Date: 20250801
  Transmission Date: 20251021
  Serious: Yes (Other)
  Sender: RANBAXY
  Company Number: US-SUN PHARMACEUTICAL INDUSTRIES LTD-2025R1-519974

PATIENT
  Age: 27 Year
  Sex: Female

DRUGS (1)
  1. LITHIUM [Suspect]
     Active Substance: LITHIUM
     Indication: Product used for unknown indication
     Route: 065

REACTIONS (4)
  - Thyrotoxic crisis [Recovering/Resolving]
  - Acute respiratory failure [Recovering/Resolving]
  - Encephalopathy [Recovering/Resolving]
  - Toxicity to various agents [Recovering/Resolving]
